FAERS Safety Report 21168604 (Version 1)
Quarter: 2022Q3

REPORT INFORMATION
  Report Type: Spontaneous
  Country: CN (occurrence: CN)
  Receive Date: 20220803
  Receipt Date: 20220803
  Transmission Date: 20221027
  Serious: Yes (Hospitalization, Other)
  Sender: FDA-Public Use
  Company Number: CN-009507513-2208CHN000459

PATIENT
  Age: 43 Year
  Sex: Male

DRUGS (1)
  1. KEYTRUDA [Suspect]
     Active Substance: PEMBROLIZUMAB
     Indication: Drug therapy
     Dosage: 200 MG, ONCE, IV DRIP
     Route: 041
     Dates: start: 20220625, end: 20220625

REACTIONS (3)
  - Colon cancer [Recovering/Resolving]
  - Adverse event [Unknown]
  - Neutrophil/lymphocyte ratio increased [Unknown]

NARRATIVE: CASE EVENT DATE: 20220101
